FAERS Safety Report 7191157-0 (Version None)
Quarter: 2010Q4

REPORT INFORMATION
  Report Type: 
  Country: None (occurrence: None)
  Receive Date: 20101223
  Receipt Date: 20101221
  Transmission Date: 20110411
  Serious: Yes (Other)
  Sender: FDA-Public Use
  Company Number: JP-PFIZER INC-2010176768

PATIENT
  Sex: Male

DRUGS (1)
  1. ZYVOX [Suspect]
     Dosage: UNK
     Route: 041
     Dates: start: 20101214

REACTIONS (1)
  - HYPONATRAEMIA [None]
